FAERS Safety Report 25035190 (Version 1)
Quarter: 2025Q1

REPORT INFORMATION
  Report Type: Spontaneous
  Country: CN (occurrence: CN)
  Receive Date: 20250304
  Receipt Date: 20250304
  Transmission Date: 20250409
  Serious: Yes (Hospitalization, Other)
  Sender: RANBAXY
  Company Number: CN-SUN PHARMACEUTICAL INDUSTRIES LTD-2025R1-496608

PATIENT
  Age: 71 Year
  Sex: Male

DRUGS (12)
  1. DOCETAXEL [Suspect]
     Active Substance: DOCETAXEL
     Indication: Cholangiocarcinoma
     Route: 042
  2. DOCETAXEL [Suspect]
     Active Substance: DOCETAXEL
     Indication: Lung adenocarcinoma
  3. DOCETAXEL [Suspect]
     Active Substance: DOCETAXEL
     Indication: Prostate cancer
  4. BICALUTAMIDE [Suspect]
     Active Substance: BICALUTAMIDE
     Indication: Cholangiocarcinoma
     Dosage: 50 MILLIGRAM, QD
     Route: 048
  5. BICALUTAMIDE [Suspect]
     Active Substance: BICALUTAMIDE
     Indication: Lung adenocarcinoma
  6. BICALUTAMIDE [Suspect]
     Active Substance: BICALUTAMIDE
     Indication: Prostate cancer
  7. ENDOSTATIN [Suspect]
     Active Substance: ENDOSTATIN
     Indication: Cholangiocarcinoma
     Route: 042
  8. ENDOSTATIN [Suspect]
     Active Substance: ENDOSTATIN
     Indication: Lung adenocarcinoma
  9. ENDOSTATIN [Suspect]
     Active Substance: ENDOSTATIN
     Indication: Prostate cancer
  10. NEDAPLATIN [Suspect]
     Active Substance: NEDAPLATIN
     Indication: Cholangiocarcinoma
     Route: 042
  11. NEDAPLATIN [Suspect]
     Active Substance: NEDAPLATIN
     Indication: Lung adenocarcinoma
  12. NEDAPLATIN [Suspect]
     Active Substance: NEDAPLATIN
     Indication: Prostate cancer

REACTIONS (3)
  - Condition aggravated [Unknown]
  - Neoplasm progression [Unknown]
  - Metastases to central nervous system [Unknown]
